FAERS Safety Report 9483235 (Version 1)
Quarter: 2013Q3

REPORT INFORMATION
  Report Type: Spontaneous
  Country: US (occurrence: US)
  Receive Date: 20130828
  Receipt Date: 20130828
  Transmission Date: 20140515
  Serious: Yes (Hospitalization, Other)
  Sender: FDA-Public Use
  Company Number: US-AMGEN-KDL244871

PATIENT
  Age: 58 Year
  Sex: Female

DRUGS (1)
  1. ENBREL [Suspect]
     Indication: RHEUMATOID ARTHRITIS
     Dosage: 50 MG, QWK
     Route: 058
     Dates: start: 20040901

REACTIONS (8)
  - Vascular occlusion [Unknown]
  - Dyspnoea [Unknown]
  - Bronchitis [Unknown]
  - Productive cough [Unknown]
  - Sinus headache [Unknown]
  - Neck pain [Unknown]
  - Local swelling [Unknown]
  - Local swelling [Unknown]
